FAERS Safety Report 5016919-7 (Version None)
Quarter: 2006Q2

REPORT INFORMATION
  Report Type: 
  Country: None (occurrence: None)
  Receive Date: 20060526
  Receipt Date: 20060522
  Transmission Date: 20061013
  Serious: Yes (Hospitalization, Other)
  Sender: FDA-Public Use
  Company Number: HQWYE457922MAY06

PATIENT
  Age: 3 Year
  Sex: Male

DRUGS (3)
  1. ADVIL ENFANTS ET NOURRISSONS (IBUPROFEN, SUSPENSION [Suspect]
     Indication: PYREXIA
     Dosage: ORAL
     Route: 048
     Dates: start: 20060125, end: 20060126
  2. ACETAMINOPHEN [Concomitant]
  3. MAXILASE (AMYLASE) [Concomitant]

REACTIONS (7)
  - ANOREXIA [None]
  - HAEMOGLOBIN DECREASED [None]
  - HEART RATE INCREASED [None]
  - LUNG DISORDER [None]
  - PLATELET COUNT INCREASED [None]
  - PLEURISY [None]
  - WHITE BLOOD CELL COUNT INCREASED [None]
